FAERS Safety Report 11700037 (Version 1)
Quarter: 2015Q4

REPORT INFORMATION
  Report Type: Other
  Country: CA (occurrence: CA)
  Receive Date: 20151105
  Receipt Date: 20151105
  Transmission Date: 20160304
  Serious: Yes (Hospitalization)
  Sender: FDA-Public Use
  Company Number: CA-LUPIN PHARMACEUTICALS INC.-2015-03393

PATIENT
  Age: 45 Year
  Sex: Female

DRUGS (3)
  1. SERTRALINE [Suspect]
     Active Substance: SERTRALINE HYDROCHLORIDE
     Indication: MAJOR DEPRESSION
     Dosage: 300 MG/DAY
     Route: 065
  2. PERPHENAZINE. [Suspect]
     Active Substance: PERPHENAZINE
     Indication: MAJOR DEPRESSION
     Dosage: 8 MG/DAY
     Route: 065
  3. LORAZEPAM. [Suspect]
     Active Substance: LORAZEPAM
     Indication: MAJOR DEPRESSION
     Dosage: 4 MG/DAY
     Route: 065

REACTIONS (2)
  - Condition aggravated [Recovered/Resolved]
  - Mitochondrial cytopathy [Recovered/Resolved]
